FAERS Safety Report 5853455-X (Version None)
Quarter: 2008Q3

REPORT INFORMATION
  Report Type: 
  Country: None (occurrence: None)
  Receive Date: 20080820
  Receipt Date: 20080808
  Transmission Date: 20090109
  Serious: No
  Sender: FDA-Public Use
  Company Number: 2008-178977-NL

PATIENT
  Age: 36 Year
  Sex: Female

DRUGS (6)
  1. ETONOGESTREL (BATCH# 761023/744858) [Suspect]
     Dosage: DF
     Dates: start: 20051024, end: 20080616
  2. TRAMADOL HCL [Concomitant]
  3. CARBAMAZEPINE [Concomitant]
  4. LAMOTRIGINE [Concomitant]
  5. COVERSYL PLUS [Concomitant]
  6. CLONAZEPAM [Concomitant]

REACTIONS (4)
  - DRUG EXPOSURE DURING PREGNANCY [None]
  - EPILEPSY [None]
  - HYPERTENSION [None]
  - PREGNANCY WITH IMPLANT CONTRACEPTIVE [None]
